FAERS Safety Report 6765150-3 (Version None)
Quarter: 2010Q2

REPORT INFORMATION
  Report Type: 
  Country: None (occurrence: None)
  Receive Date: 20100610
  Receipt Date: 20100610
  Transmission Date: 20101027
  Serious: Yes (Other)
  Sender: FDA-Public Use
  Company Number: None

PATIENT
  Sex: Male
  Weight: 75.7507 kg

DRUGS (1)
  1. AVAPRO [Suspect]
     Indication: HYPERTENSION
     Dosage: 1 TAB DAILY MOUTH
     Route: 048
     Dates: start: 20100310, end: 20100424

REACTIONS (6)
  - ALCOHOLISM [None]
  - DECREASED APPETITE [None]
  - DECREASED INTEREST [None]
  - FATIGUE [None]
  - LAZINESS [None]
  - VOMITING [None]
